FAERS Safety Report 6272431-9 (Version None)
Quarter: 2009Q3

REPORT INFORMATION
  Report Type: 
  Country: None (occurrence: None)
  Receive Date: 20090717
  Receipt Date: 20090710
  Transmission Date: 20100115
  Serious: Yes (Hospitalization)
  Sender: FDA-Public Use
  Company Number: JP-ASTRAZENECA-2009SE03569

PATIENT
  Age: 12985 Day
  Sex: Female

DRUGS (8)
  1. NOLVADEX [Suspect]
     Indication: BREAST CANCER
     Route: 048
     Dates: start: 20090312, end: 20090522
  2. ZOLADEX [Suspect]
     Indication: BREAST CANCER
     Route: 058
     Dates: start: 20090311, end: 20090513
  3. TRYPTANOL [Concomitant]
     Route: 048
     Dates: start: 20080601
  4. LEXOTAN [Concomitant]
     Route: 048
     Dates: start: 20080601
  5. PZC [Concomitant]
     Route: 048
     Dates: start: 20080601
  6. SILECE [Concomitant]
     Route: 048
     Dates: start: 20080601
  7. DORAL [Concomitant]
     Route: 048
     Dates: start: 20080601
  8. HALCION [Concomitant]
     Route: 048
     Dates: start: 20080601

REACTIONS (4)
  - COLITIS [None]
  - NAUSEA [None]
  - PYREXIA [None]
  - VOMITING [None]
